FAERS Safety Report 5400601-8 (Version None)
Quarter: 2007Q3

REPORT INFORMATION
  Report Type: 
  Country: None (occurrence: None)
  Receive Date: 20070730
  Receipt Date: 20070117
  Transmission Date: 20080115
  Serious: No
  Sender: FDA-Public Use
  Company Number: A0636170A

PATIENT
  Age: 64 Year
  Sex: Female

DRUGS (2)
  1. ZANTAC 150 [Suspect]
     Indication: DRUG USE FOR UNKNOWN INDICATION
     Route: 065
     Dates: start: 20070106
  2. GAS X [Suspect]
     Dosage: 125MG PER DAY
     Route: 048
     Dates: start: 20070105

REACTIONS (1)
  - VOMITING [None]
